FAERS Safety Report 6930788-7 (Version None)
Quarter: 2010Q3

REPORT INFORMATION
  Report Type: 
  Country: None (occurrence: None)
  Receive Date: 20100818
  Receipt Date: 20100714
  Transmission Date: 20110219
  Serious: No
  Sender: FDA-Public Use
  Company Number: US-JNJFOC-20100705003

PATIENT
  Sex: Female

DRUGS (1)
  1. INVEGA [Suspect]
     Indication: MENTAL IMPAIRMENT
     Route: 048

REACTIONS (3)
  - OVERDOSE [None]
  - VOMITING [None]
  - WRONG TECHNIQUE IN DRUG USAGE PROCESS [None]
